FAERS Safety Report 17663817 (Version 1)
Quarter: 2020Q2

REPORT INFORMATION
  Report Type: Spontaneous
  Country: US (occurrence: US)
  Receive Date: 20200414
  Receipt Date: 20200414
  Transmission Date: 20200713
  Serious: Yes (Life-Threatening, Other)
  Sender: FDA-Public Use
  Company Number: US-HETERO-HET2020US00408

PATIENT
  Age: 54 Year
  Sex: Male

DRUGS (1)
  1. ROSUVASTATIN. [Suspect]
     Active Substance: ROSUVASTATIN
     Indication: PRODUCT USED FOR UNKNOWN INDICATION
     Route: 065

REACTIONS (8)
  - Leukocytosis [Recovered/Resolved]
  - Lymphadenopathy [Unknown]
  - Disseminated intravascular coagulation [Unknown]
  - Drug eruption [Recovering/Resolving]
  - Renal failure [Recovered/Resolved]
  - Transaminases increased [Recovered/Resolved]
  - Drug reaction with eosinophilia and systemic symptoms [Recovering/Resolving]
  - Hyperbilirubinaemia [Recovered/Resolved]
